FAERS Safety Report 16533837 (Version 5)
Quarter: 2024Q4

REPORT INFORMATION
  Report Type: Spontaneous
  Country: NL (occurrence: NL)
  Receive Date: 20190704
  Receipt Date: 20241007
  Transmission Date: 20250114
  Serious: Yes (Hospitalization, Other)
  Sender: MYLAN
  Company Number: NL-MYLANLABS-2019M1062875

PATIENT
  Age: 68 Year
  Sex: Male

DRUGS (12)
  1. IMATINIB [Interacting]
     Active Substance: IMATINIB
     Indication: Chronic myeloid leukaemia (in remission)
     Dosage: 400 MILLIGRAM
     Route: 065
  2. IMATINIB [Interacting]
     Active Substance: IMATINIB
     Indication: Chronic myeloid leukaemia
     Dosage: UNK, MAINTENANCE THERAPY
     Route: 065
     Dates: start: 201411, end: 201610
  3. IMATINIB [Interacting]
     Active Substance: IMATINIB
     Dosage: 20 MILLIGRAM
     Route: 065
     Dates: start: 201701
  4. IMATINIB [Interacting]
     Active Substance: IMATINIB
     Dosage: UNK (REINTRODUCED)
     Route: 065
  5. IMATINIB [Interacting]
     Active Substance: IMATINIB
     Dosage: UNK
     Route: 065
     Dates: start: 201701
  6. BUMETANIDE [Suspect]
     Active Substance: BUMETANIDE
     Indication: Product used for unknown indication
     Dosage: UNK
     Route: 065
     Dates: start: 20160725
  7. SIMVASTATIN [Interacting]
     Active Substance: SIMVASTATIN
     Indication: Product used for unknown indication
     Dosage: UNK
     Route: 065
     Dates: start: 2007, end: 20180611
  8. SIMVASTATIN [Interacting]
     Active Substance: SIMVASTATIN
     Dosage: UNK
     Route: 065
     Dates: start: 2007
  9. CLOPIDOGREL BISULFATE [Interacting]
     Active Substance: CLOPIDOGREL BISULFATE
     Indication: Product used for unknown indication
     Dosage: UNK, SINCE FEW MONTHS
     Route: 065
     Dates: start: 201607
  10. ALFACALCIDOL [Interacting]
     Active Substance: ALFACALCIDOL
     Indication: Product used for unknown indication
     Dosage: UNK
     Route: 065
  11. PREDNISONE [Suspect]
     Active Substance: PREDNISONE
     Indication: Product used for unknown indication
     Dosage: TAPERED OFF OVER A PERIOD OF THREE MONTHS TO A MAINTENANCE DOSE OF 5 MG
     Route: 065
  12. PREDNISONE [Suspect]
     Active Substance: PREDNISONE
     Dosage: 5 MILLIGRAM, QD
     Route: 065

REACTIONS (6)
  - Muscular weakness [Recovered/Resolved]
  - Weight decreased [Recovered/Resolved]
  - Toxicity to various agents [Recovered/Resolved]
  - Organising pneumonia [Recovered/Resolved]
  - Interstitial lung disease [Recovered/Resolved]
  - Drug interaction [Recovered/Resolved]

NARRATIVE: CASE EVENT DATE: 20161001
